FAERS Safety Report 9725235 (Version 1)
Quarter: 2013Q4

REPORT INFORMATION
  Report Type: Spontaneous
  Country: US (occurrence: None)
  Receive Date: 20131202
  Receipt Date: 20131202
  Transmission Date: 20140711
  Serious: Yes (Disabling, Other)
  Sender: FDA-Public Use
  Company Number: None

PATIENT
  Age: 66 Year
  Sex: Female
  Weight: 101.61 kg

DRUGS (1)
  1. AFRIN [Suspect]
     Indication: RHINITIS
     Dosage: CG NOSTRIL/ 1 DAY
     Dates: start: 20131015, end: 20131120

REACTIONS (2)
  - Food allergy [None]
  - Abasia [None]
